FAERS Safety Report 23756647 (Version 1)
Quarter: 2024Q2

REPORT INFORMATION
  Report Type: Spontaneous
  Country: US (occurrence: None)
  Receive Date: 20240418
  Receipt Date: 20240418
  Transmission Date: 20240716
  Serious: No
  Sender: FDA-Public Use
  Company Number: None

PATIENT
  Age: 48 Year
  Sex: Female
  Weight: 73.02 kg

DRUGS (3)
  1. CYTARABINE [Suspect]
     Active Substance: CYTARABINE
     Dates: start: 20240405
  2. DASATINIB [Suspect]
     Active Substance: DASATINIB
     Dates: end: 20240414
  3. METHOTREXATE [Suspect]
     Active Substance: METHOTREXATE
     Dates: end: 20240402

REACTIONS (6)
  - Fatigue [None]
  - Stomatitis [None]
  - Neutropenia [None]
  - Anaemia [None]
  - Platelet count decreased [None]
  - Febrile neutropenia [None]

NARRATIVE: CASE EVENT DATE: 20240415
